FAERS Safety Report 5215277-2 (Version None)
Quarter: 2007Q1

REPORT INFORMATION
  Report Type: 
  Country: None (occurrence: None)
  Receive Date: 20070117
  Receipt Date: 20070102
  Transmission Date: 20070707
  Serious: Yes (Death, Hospitalization)
  Sender: FDA-Public Use
  Company Number: FSC_0031_2007

PATIENT
  Sex: Female

DRUGS (1)
  1. SECURON [Suspect]
     Dosage: 1 TAB PO
     Route: 048
     Dates: start: 20060901, end: 20060901

REACTIONS (3)
  - DRUG ADMINISTRATION ERROR [None]
  - RESPIRATORY FAILURE [None]
  - WRONG TECHNIQUE IN DRUG USAGE PROCESS [None]
